FAERS Safety Report 5635701-0 (Version None)
Quarter: 2008Q1

REPORT INFORMATION
  Report Type: 
  Country: None (occurrence: None)
  Receive Date: 20080220
  Receipt Date: 20080206
  Transmission Date: 20080703
  Serious: Yes (Death, Life-Threatening, Hospitalization)
  Sender: FDA-Public Use
  Company Number: 2008-00338

PATIENT
  Age: 85 Year
  Sex: Female
  Weight: 67 kg

DRUGS (6)
  1. VELCADE [Suspect]
     Indication: MULTIPLE MYELOMA
     Dosage: 1.30 MG/M2, INTRAVENOUS
     Route: 042
     Dates: start: 20071023, end: 20080128
  2. FUROSEMIDE [Concomitant]
  3. LANOXIN [Concomitant]
  4. TICLOPIDINE HCL [Concomitant]
  5. DARBEPOETIN ALFA (DARBEPOETIN ALFA) [Concomitant]
  6. PAMIDRONATE DISODIUM [Concomitant]

REACTIONS (9)
  - CARDIAC FAILURE [None]
  - CARDIO-RESPIRATORY ARREST [None]
  - CEREBROVASCULAR ACCIDENT [None]
  - COMA [None]
  - DRUG TOXICITY [None]
  - HYPOXIC ENCEPHALOPATHY [None]
  - MYOCARDIAL ISCHAEMIA [None]
  - SPINAL CORD DISORDER [None]
  - VENTRICULAR FIBRILLATION [None]
